FAERS Safety Report 20130256 (Version 1)
Quarter: 2021Q4

REPORT INFORMATION
  Report Type: Spontaneous
  Country: US (occurrence: US)
  Receive Date: 20211130
  Receipt Date: 20211130
  Transmission Date: 20220303
  Serious: No
  Sender: FDA-Public Use
  Company Number: US-PFIZER INC-2021562683

PATIENT
  Age: 63 Year
  Sex: Male
  Weight: 104.26 kg

DRUGS (2)
  1. XELJANZ [Suspect]
     Active Substance: TOFACITINIB CITRATE
     Indication: Rheumatoid arthritis
     Dosage: 5 MG, 2X/DAY
     Route: 048
     Dates: start: 202008
  2. MEXATE [METHOTREXATE] [Concomitant]
     Dosage: UNK

REACTIONS (1)
  - Blood creatinine decreased [Not Recovered/Not Resolved]
